FAERS Safety Report 21775772 (Version 1)
Quarter: 2022Q4

REPORT INFORMATION
  Report Type: Spontaneous
  Country: US (occurrence: US)
  Receive Date: 20221226
  Receipt Date: 20221226
  Transmission Date: 20230113
  Serious: No
  Sender: FDA-Public Use
  Company Number: US-SA-SAC20220812000203

PATIENT
  Sex: Female

DRUGS (25)
  1. DUPIXENT [Suspect]
     Active Substance: DUPILUMAB
     Indication: Asthma
     Dosage: 300 MG, QOW
     Route: 058
     Dates: start: 20201023
  2. ALBUTEROL SULFATE [Concomitant]
     Active Substance: ALBUTEROL SULFATE
  3. BENZTROPINE [Concomitant]
     Active Substance: BENZTROPINE
  4. CLONIDINE [Concomitant]
     Active Substance: CLONIDINE
  5. DULERA [Concomitant]
     Active Substance: FORMOTEROL FUMARATE DIHYDRATE\MOMETASONE FUROATE
  6. FLUOXETINE [Concomitant]
     Active Substance: FLUOXETINE HYDROCHLORIDE
  7. IBUPROFEN [Concomitant]
     Active Substance: IBUPROFEN
  8. LIDOCAINE [Concomitant]
     Active Substance: LIDOCAINE
  9. LISINOPRIL [Concomitant]
     Active Substance: LISINOPRIL
  10. MONTELUKAST [Concomitant]
     Active Substance: MONTELUKAST SODIUM
  11. RISPERIDONE [Concomitant]
     Active Substance: RISPERIDONE
  12. ALBUTEROL [Concomitant]
     Active Substance: ALBUTEROL
  13. BUPROPION HYDROCHLORIDE XL [Concomitant]
     Active Substance: BUPROPION HYDROCHLORIDE
  14. BUPROPION HYDROCHLORIDE XL [Concomitant]
     Active Substance: BUPROPION HYDROCHLORIDE
  15. CLONIDINE [Concomitant]
     Active Substance: CLONIDINE
  16. LISINOPRIL [Concomitant]
     Active Substance: LISINOPRIL
  17. METHYLPREDNISOLONE [Concomitant]
     Active Substance: METHYLPREDNISOLONE
  18. DICLOFENAC [Concomitant]
     Active Substance: DICLOFENAC
  19. SHINGRIX [Concomitant]
     Active Substance: RECOMBINANT VARICELLA ZOSTER VIRUS (VZV) GLYCOPROTEIN E
  20. VITAMIN D NOS [Concomitant]
     Active Substance: VITAMIN D NOS
  21. AMMONIUM LACTATE [Concomitant]
     Active Substance: AMMONIUM LACTATE
  22. OMEGA-3-ACID ETHYL ESTER [Concomitant]
     Active Substance: OMEGA-3-ACID ETHYL ESTERS
  23. SALONPAS [CAPSAICIN;MENTHOL] [Concomitant]
  24. METHYLPREDNISOLONE [Concomitant]
     Active Substance: METHYLPREDNISOLONE
  25. OMEGA-3 FATTY ACIDS [Concomitant]
     Active Substance: OMEGA-3 FATTY ACIDS

REACTIONS (1)
  - Impaired quality of life [Not Recovered/Not Resolved]
